FAERS Safety Report 6676379-7 (Version None)
Quarter: 2010Q2

REPORT INFORMATION
  Report Type: 
  Country: None (occurrence: None)
  Receive Date: 20100412
  Receipt Date: 20100402
  Transmission Date: 20101027
  Serious: Yes (Other)
  Sender: FDA-Public Use
  Company Number: US-SANOFI-AVENTIS-2010SA009192

PATIENT
  Age: 73 Year
  Sex: Male
  Weight: 91 kg

DRUGS (15)
  1. DRONEDARONE HCL [Suspect]
     Indication: ATRIAL FIBRILLATION
     Route: 048
     Dates: start: 20100212, end: 20100215
  2. AMIODARONE HCL [Concomitant]
     Dates: start: 20100115, end: 20100128
  3. WARFARIN SODIUM [Concomitant]
     Dates: start: 20091015
  4. LASIX [Concomitant]
     Dates: start: 20091201
  5. LASIX [Concomitant]
     Dates: start: 20091201
  6. LOVASTATIN [Concomitant]
     Dates: start: 20050101
  7. LEVOTHYROXINE SODIUM [Concomitant]
     Indication: THYROID DISORDER
     Dates: start: 20100205
  8. OXYBUTYNIN [Concomitant]
     Indication: URINARY TRACT DISORDER
  9. TERAZOSIN HCL [Concomitant]
     Indication: URINARY TRACT DISORDER
  10. TERAZOSIN HCL [Concomitant]
     Indication: PROSTATIC DISORDER
  11. FINASTERIDE [Concomitant]
     Indication: PROSTATIC DISORDER
  12. ATROVENT [Concomitant]
     Indication: EMPHYSEMA
     Dosage: 2 PUFFS 4 TIMES A DAY
     Dates: start: 20050101
  13. FLONASE [Concomitant]
     Dosage: 2 PUFFS EACH NOSTRIL AT BEDTIME 50MCG
  14. ATIVAN [Concomitant]
     Indication: ANXIETY
     Dosage: 1MG AS NEEDED
     Dates: start: 20070101
  15. RANITIDINE HCL [Concomitant]
     Indication: GASTRIC DISORDER
     Dates: start: 20070101

REACTIONS (2)
  - ATRIAL FIBRILLATION [None]
  - DYSPNOEA [None]
